FAERS Safety Report 22333624 (Version 1)
Quarter: 2023Q2

REPORT INFORMATION
  Report Type: Spontaneous
  Country: US (occurrence: US)
  Receive Date: 20230517
  Receipt Date: 20230517
  Transmission Date: 20230722
  Serious: Yes (Other)
  Sender: FDA-Public Use
  Company Number: US-APIL-2314314US

PATIENT

DRUGS (1)
  1. REFRESH OPTIVE GEL DROPS [Suspect]
     Active Substance: CARBOXYMETHYLCELLULOSE SODIUM\GLYCERIN
     Indication: Product used for unknown indication

REACTIONS (4)
  - Blindness [Unknown]
  - Eye infection [Unknown]
  - Pain [Unknown]
  - Skin exfoliation [Unknown]
